FAERS Safety Report 19588742 (Version 1)
Quarter: 2021Q3

REPORT INFORMATION
  Report Type: Spontaneous
  Country: CN (occurrence: CN)
  Receive Date: 20210721
  Receipt Date: 20210721
  Transmission Date: 20211014
  Serious: Yes (Other)
  Sender: FDA-Public Use
  Company Number: CN-STRIDES ARCOLAB LIMITED-2021SP025173

PATIENT
  Age: 12 Year
  Sex: Male

DRUGS (13)
  1. L?ASPARAGINASE [Suspect]
     Active Substance: ASPARAGINASE
     Indication: PRECURSOR B-LYMPHOBLASTIC LYMPHOMA
     Dosage: UNK, CYCLICAL AS PART OF VDLD AND CAM+VL REGIMEN
     Route: 065
  2. DAUNORUBICIN [Suspect]
     Active Substance: DAUNORUBICIN
     Indication: PRECURSOR B-LYMPHOBLASTIC LYMPHOMA
     Dosage: UNK, CYCLICAL  AS PART OF VDLD REGIMEN
     Route: 065
  3. DAUNORUBICIN [Suspect]
     Active Substance: DAUNORUBICIN
     Indication: METASTASES TO BONE
  4. DEXAMETHASONE. [Suspect]
     Active Substance: DEXAMETHASONE
     Indication: PRECURSOR B-LYMPHOBLASTIC LYMPHOMA
     Dosage: UNK, CYCLICAL  AS PART OF VDLD REGIMEN
     Route: 065
  5. CYTOSINE ARABINOSIDE [Suspect]
     Active Substance: CYTARABINE
     Indication: PRECURSOR B-LYMPHOBLASTIC LYMPHOMA
     Dosage: UNK, CYCLICAL  AS PART OF CAM+VL REGIMEN
     Route: 065
  6. CYTOSINE ARABINOSIDE [Suspect]
     Active Substance: CYTARABINE
     Indication: CHLOROMA
     Dosage: UNK, CYCLICAL
     Route: 065
  7. CYCLOPHOSPHAMIDE. [Suspect]
     Active Substance: CYCLOPHOSPHAMIDE
     Indication: PRECURSOR B-LYMPHOBLASTIC LYMPHOMA
     Dosage: UNK, CYCLICAL  AS PART OF CAM+VL REGIMEN
     Route: 065
  8. PREDNISOLONE. [Suspect]
     Active Substance: PREDNISOLONE
     Indication: PRECURSOR B-LYMPHOBLASTIC LYMPHOMA
     Dosage: UNK, RECEIVED FOR 7 DAYS PRIOR TO INITIATION OF INDUCTION THERAPY
     Route: 065
  9. CYTOSINE ARABINOSIDE [Suspect]
     Active Substance: CYTARABINE
     Indication: METASTASES TO BONE
  10. DAUNORUBICIN [Suspect]
     Active Substance: DAUNORUBICIN
     Indication: CHLOROMA
     Dosage: UNK, CYCLICAL
     Route: 065
  11. 6?MERCAPTOPURINE MONOHYDRATE [Suspect]
     Active Substance: MERCAPTOPURINE
     Indication: PRECURSOR B-LYMPHOBLASTIC LYMPHOMA
     Dosage: UNK, CYCLICAL  AS PART OF CAM+VL REGIMEN
     Route: 065
  12. METHOTREXATE. [Suspect]
     Active Substance: METHOTREXATE
     Indication: PRECURSOR B-LYMPHOBLASTIC LYMPHOMA
     Dosage: UNK, CYCLICAL HIGH?DOSE; FOR 4 CYCLES AS CONSOLIDATION THERAPY
     Route: 065
  13. VINCRISTINE [Suspect]
     Active Substance: VINCRISTINE
     Indication: PRECURSOR B-LYMPHOBLASTIC LYMPHOMA
     Dosage: UNK, AS PART OF VDLD AND CAM+VL REGIMEN
     Route: 065

REACTIONS (3)
  - Metastases to bone [Unknown]
  - Chloroma [Unknown]
  - Off label use [Unknown]
